FAERS Safety Report 22207594 (Version 2)
Quarter: 2023Q2

REPORT INFORMATION
  Report Type: Spontaneous
  Country: PT (occurrence: PT)
  Receive Date: 20230413
  Receipt Date: 20230511
  Transmission Date: 20230722
  Serious: Yes (Other)
  Sender: FDA-Public Use
  Company Number: None

PATIENT
  Age: 86 Year
  Sex: Female
  Weight: 72 kg

DRUGS (19)
  1. SPIRONOLACTONE [Suspect]
     Active Substance: SPIRONOLACTONE
     Dosage: 12.5 MG, 1X/DAY
     Route: 048
     Dates: start: 20220221
  2. SPIRONOLACTONE [Suspect]
     Active Substance: SPIRONOLACTONE
     Dosage: 50 MG, 1X/DAY, TWO TABLETS WITH LUNCH
     Route: 048
     Dates: end: 202303
  3. TRAZODONE HYDROCHLORIDE [Suspect]
     Active Substance: TRAZODONE HYDROCHLORIDE
     Indication: Insomnia
     Dosage: UNK
     Dates: start: 202104
  4. TRAZODONE HYDROCHLORIDE [Suspect]
     Active Substance: TRAZODONE HYDROCHLORIDE
     Dosage: 1 THIRD WITH DINNER
     Route: 048
     Dates: end: 202301
  5. TRAZODONE HYDROCHLORIDE [Suspect]
     Active Substance: TRAZODONE HYDROCHLORIDE
     Dosage: 150 MG, 1X/DAY, WITH LUNCH
     Route: 048
     Dates: start: 202301, end: 202303
  6. LATANOPROST [Concomitant]
     Active Substance: LATANOPROST
     Dosage: 1 DROP AT BEDTIME
     Route: 047
  7. OMEPRAZOLE [Concomitant]
     Active Substance: OMEPRAZOLE
     Dosage: 20 MG, 1X/DAY FASTING
     Route: 048
  8. PENTOXIFYLLINE [Concomitant]
     Active Substance: PENTOXIFYLLINE
     Dosage: 1 AT BREAKFAST + 1 AT LUNCH + 1 AT DINNER
     Route: 048
  9. FUROSEMIDE [Concomitant]
     Active Substance: FUROSEMIDE
     Dosage: 1 DF, 2X/DAY (1 TABLET FASTING + 1 TABLET 30 MIN BEFORE SNACK)
     Route: 048
  10. VELTASSA [Concomitant]
     Active Substance: PATIROMER
     Indication: Hyperkalaemia
     Dosage: 8.4 G, 1X/DAY (1 SACHET OF 8.4 G FOR SNACK)
     Route: 048
     Dates: start: 20230103, end: 20230205
  11. VELTASSA [Concomitant]
     Active Substance: PATIROMER
     Dosage: 16.8 G, 1X/DAY (2 SACHET OF 8.4 G FOR SNACK )
     Route: 048
     Dates: start: 20230206, end: 20230319
  12. VELTASSA [Concomitant]
     Active Substance: PATIROMER
     Dosage: 25.2 G, 1X/DAY  (3 SACHET OF 8.4 G FOR SNACK )
     Route: 048
     Dates: start: 20230320
  13. BISOPROLOL [Concomitant]
     Active Substance: BISOPROLOL
     Dosage: 10 MG, 1X/DAY FOR BREAKFAST
     Route: 048
  14. VALPROIC ACID [Concomitant]
     Active Substance: VALPROIC ACID
     Dosage: 500 MG, 1X/DAY AT DINNER
     Route: 048
  15. RIVAROXABAN [Concomitant]
     Active Substance: RIVAROXABAN
     Dosage: 20 MG, 1X/DAY AT DINNER
     Route: 048
  16. DAFLON 1000 [Concomitant]
     Dosage: 1000 MG, 1X/DAY FOR BREAKFAST
     Route: 048
  17. ENTRESTO [Concomitant]
     Active Substance: SACUBITRIL\VALSARTAN
     Dosage: 2X/DAY (1 TABLET AT FOR BREAKFAST AND 1 AT DINNER )
     Route: 048
  18. SERTRALINE HYDROCHLORIDE [Concomitant]
     Active Substance: SERTRALINE HYDROCHLORIDE
     Dosage: 25 MG, 1X/DAY (HALF TABLET AT BREAKFAST)
     Route: 048
  19. DAPAGLIFLOZIN [Concomitant]
     Active Substance: DAPAGLIFLOZIN
     Dosage: 10 MG, 1X/DAY (AT DINNER)
     Route: 048

REACTIONS (4)
  - N-terminal prohormone brain natriuretic peptide increased [Unknown]
  - Hyponatraemia [Recovering/Resolving]
  - Blood uric acid increased [Unknown]
  - Blood magnesium decreased [Unknown]

NARRATIVE: CASE EVENT DATE: 20230311
